FAERS Safety Report 9294265 (Version 1)
Quarter: 2013Q2

REPORT INFORMATION
  Report Type: Report from Study
  Country: US (occurrence: US)
  Receive Date: 20130516
  Receipt Date: 20130516
  Transmission Date: 20140414
  Serious: Yes (Other)
  Sender: FDA-Public Use
  Company Number: US-VERTEX PHARMACEUTICALS INC-2013-005855

PATIENT
  Sex: 0

DRUGS (3)
  1. INCIVEK [Suspect]
     Indication: HEPATITIS C
  2. RIBAVIRIN [Suspect]
     Indication: HEPATITIS C
  3. PEGASYS [Suspect]
     Indication: HEPATITIS C

REACTIONS (20)
  - Hepatocellular carcinoma [Unknown]
  - Infection [Unknown]
  - Blood disorder [Unknown]
  - Cardiac disorder [Unknown]
  - Cardiovascular disorder [Unknown]
  - Electrolyte imbalance [Unknown]
  - Endocrine disorder [Unknown]
  - Gastrointestinal disorder [Unknown]
  - Lymphatic disorder [Unknown]
  - Nervous system disorder [Unknown]
  - Neoplasm malignant [Unknown]
  - Mental disorder [Unknown]
  - Lung disorder [Unknown]
  - Renal failure [Unknown]
  - Hepatic cirrhosis [Unknown]
  - Angiopathy [Unknown]
  - Anorectal disorder [Unknown]
  - Stevens-Johnson syndrome [Unknown]
  - Rash [Unknown]
  - Anaemia [Unknown]
